FAERS Safety Report 7114366-5 (Version None)
Quarter: 2010Q4

REPORT INFORMATION
  Report Type: 
  Country: None (occurrence: None)
  Receive Date: 20101119
  Receipt Date: 20101026
  Transmission Date: 20110411
  Serious: Yes (Hospitalization)
  Sender: FDA-Public Use
  Company Number: PHHO2006TW08268

PATIENT
  Sex: Male
  Weight: 12.9 kg

DRUGS (1)
  1. ELIDEL [Suspect]
     Indication: DERMATITIS ATOPIC
     Dosage: APPLIED TWICE DAILY
     Route: 061
     Dates: start: 20040719

REACTIONS (9)
  - ADENOVIRAL CONJUNCTIVITIS [None]
  - DECREASED APPETITE [None]
  - DEHYDRATION [None]
  - DIARRHOEA [None]
  - HEPATIC FUNCTION ABNORMAL [None]
  - OROPHARYNGEAL PAIN [None]
  - PHARYNGITIS [None]
  - PYREXIA [None]
  - VOMITING [None]
